FAERS Safety Report 5281325-7 (Version None)
Quarter: 2007Q1

REPORT INFORMATION
  Report Type: 
  Country: None (occurrence: None)
  Receive Date: 20070322
  Receipt Date: 20070309
  Transmission Date: 20070707
  Serious: Yes (Other)
  Sender: FDA-Public Use
  Company Number: 2007SP004685

PATIENT
  Age: 6 Year
  Sex: Female

DRUGS (1)
  1. MOMETASONE FUROATE [Suspect]
     Indication: RHINITIS
     Dosage: 1 DF;BID;NAS
     Route: 045

REACTIONS (1)
  - BRONCHOSPASM [None]
